FAERS Safety Report 15746141 (Version 1)
Quarter: 2018Q4

REPORT INFORMATION
  Report Type: Spontaneous
  Country: US (occurrence: US)
  Receive Date: 20181220
  Receipt Date: 20181220
  Transmission Date: 20190205
  Serious: Yes (Hospitalization)
  Sender: FDA-Public Use
  Company Number: US-TEVA-2018-US-989099

PATIENT
  Age: 44 Year
  Sex: Female

DRUGS (5)
  1. HEPARIN [Suspect]
     Active Substance: HEPARIN SODIUM
     Dosage: 50 UNITS/KG 3 BOLUS DOSES TO MAINTAIN THE ACTIVATED CLOTTING TIME (ACT) IN THE 400-600S RANGE
     Route: 050
  2. HEPARIN [Suspect]
     Active Substance: HEPARIN SODIUM
     Dosage: TARGETING AN ACTIVATED PARTIAL THROMBOPLASTIN TIME (APTT) OF 40-60S WAS STARTED
     Route: 050
  3. HEPARIN [Suspect]
     Active Substance: HEPARIN SODIUM
     Indication: THROMBOSIS PROPHYLAXIS
     Dosage: 300 UNIT/KG BOLUS DOSE WAS ADMINISTERED IN ADDITION TO 5000 UNITS IN THE CARDIOPULMONARY BYPASS P...
     Route: 050
  4. ENOXAPARIN SODIUM. [Suspect]
     Active Substance: ENOXAPARIN SODIUM
     Indication: THROMBOSIS PROPHYLAXIS
     Dosage: 40 MILLIGRAM DAILY; 3 DOSES
     Route: 065
  5. WARFARIN [Concomitant]
     Active Substance: WARFARIN
     Dosage: 5 MILLIGRAM DAILY;
     Route: 065

REACTIONS (1)
  - Heparin-induced thrombocytopenia [Recovering/Resolving]
